FAERS Safety Report 5324963-5 (Version None)
Quarter: 2007Q2

REPORT INFORMATION
  Report Type: 
  Country: None (occurrence: None)
  Receive Date: 20070510
  Receipt Date: 20070510
  Transmission Date: 20071010
  Serious: Yes (Hospitalization)
  Sender: FDA-Public Use
  Company Number: None

PATIENT
  Sex: Male
  Weight: 101.2 kg

DRUGS (4)
  1. CYCLOSERINE [Suspect]
     Indication: IMMUNOSUPPRESSION
     Dosage: 350 MG BID PO
     Route: 048
  2. CYCLOSERINE [Suspect]
     Indication: RENAL TRANSPLANT
     Dosage: 350 MG BID PO
     Route: 048
  3. CELLCEPT [Suspect]
     Indication: IMMUNOSUPPRESSION
     Dosage: 500 MG BID PO
     Route: 048
  4. CELLCEPT [Suspect]
     Indication: RENAL TRANSPLANT
     Dosage: 500 MG BID PO
     Route: 048

REACTIONS (1)
  - GASTRITIS EROSIVE [None]
